FAERS Safety Report 12731661 (Version 1)
Quarter: 2016Q3

REPORT INFORMATION
  Report Type: Spontaneous
  Country: US (occurrence: US)
  Receive Date: 20160909
  Receipt Date: 20160909
  Transmission Date: 20161109
  Serious: Yes (Death)
  Sender: FDA-Public Use
  Company Number: None

PATIENT
  Age: 63 Year
  Sex: Female
  Weight: 87.5 kg

DRUGS (3)
  1. NACL [Concomitant]
     Active Substance: SODIUM CHLORIDE
  2. VENETOCLAX [Suspect]
     Active Substance: VENETOCLAX
     Indication: CHRONIC LYMPHOCYTIC LEUKAEMIA
     Route: 048
     Dates: start: 20160908, end: 20160909
  3. ALLOPURINOL. [Concomitant]
     Active Substance: ALLOPURINOL

REACTIONS (6)
  - Disease progression [None]
  - Ventricular tachycardia [None]
  - Blood phosphorus increased [None]
  - Hyperkalaemia [None]
  - Neutropenia [None]
  - Tumour lysis syndrome [None]

NARRATIVE: CASE EVENT DATE: 20160908
